FAERS Safety Report 5631670-8 (Version None)
Quarter: 2008Q1

REPORT INFORMATION
  Report Type: 
  Country: None (occurrence: None)
  Receive Date: 20080213
  Receipt Date: 20080204
  Transmission Date: 20080703
  Serious: No
  Sender: FDA-Public Use
  Company Number: 2008-171628-NL

PATIENT
  Age: 41 Year
  Sex: Male

DRUGS (9)
  1. VECURONIUM BROMIDE [Suspect]
     Indication: ANAESTHESIA
     Dosage: 8 MG ONCE/ 4 MG ONCE/ 2 MG ONCE/ 1 MG ONCE/ 2 MG ONCE INTRAVENOUS (NOS)
     Route: 042
  2. NICOTINE [Suspect]
     Indication: DRUG THERAPY
     Dosage: 21 MG QD TRANSDERMAL
     Route: 062
  3. GLYCOPYRROLATE [Concomitant]
  4. ONDANSEIRON [Concomitant]
  5. MIDAZOLAM HCL [Concomitant]
  6. IHIOPENIONE [Concomitant]
  7. NITROUS OXIDE [Concomitant]
  8. OXYGEN [Concomitant]
  9. ISOFLURANE [Concomitant]

REACTIONS (2)
  - BRADYCARDIA [None]
  - INHIBITORY DRUG INTERACTION [None]
